FAERS Safety Report 10394139 (Version 2)
Quarter: 2014Q4

REPORT INFORMATION
  Report Type: Spontaneous
  Country: JP (occurrence: JP)
  Receive Date: 20140819
  Receipt Date: 20141027
  Transmission Date: 20150528
  Serious: Yes (Death, Hospitalization, Other)
  Sender: FDA-Public Use
  Company Number: PHHY2013JP161541

PATIENT
  Age: 56 Year
  Sex: Female

DRUGS (1)
  1. EXJADE [Suspect]
     Active Substance: DEFERASIROX
     Indication: APLASTIC ANAEMIA
     Dosage: 500 MG, DAILY
     Route: 065

REACTIONS (3)
  - Granulocytopenia [Unknown]
  - Serum ferritin decreased [Unknown]
  - Pneumonia [Fatal]
